FAERS Safety Report 8602530-5 (Version None)
Quarter: 2012Q3

REPORT INFORMATION
  Report Type: 
  Country: None (occurrence: None)
  Receive Date: 20120817
  Receipt Date: 19901102
  Transmission Date: 20120928
  Serious: Yes (Hospitalization)
  Sender: FDA-Public Use
  Company Number: US-ROCHE-1100985

PATIENT
  Age: 47 Year
  Sex: Male

DRUGS (9)
  1. NITROGLYCERIN [Concomitant]
     Route: 042
  2. LIDOCAINE [Concomitant]
     Dosage: 1 MG/KG GTT, 2MG/MIN
  3. MORPHINE [Concomitant]
     Route: 040
  4. HEPARIN [Concomitant]
     Route: 040
  5. ACTIVASE [Suspect]
     Indication: ELECTROCARDIOGRAM Q WAVES
     Dosage: OVER 1-2 MINS
     Route: 040
  6. ACTIVASE [Suspect]
     Dosage: FIRST HOUR
     Route: 042
  7. VALIUM [Concomitant]
     Dosage: EVERY 2 HRS
     Route: 040
  8. ATROPINE [Concomitant]
     Dosage: 0.5-1 MG
  9. ACTIVASE [Suspect]
     Dosage: 20 MG/HR FOR 2 HRS MAINTENANCE DOSE

REACTIONS (1)
  - PLEURITIC PAIN [None]
